FAERS Safety Report 5030691-6 (Version None)
Quarter: 2006Q2

REPORT INFORMATION
  Report Type: 
  Country: None (occurrence: None)
  Receive Date: 20060615
  Receipt Date: 20060526
  Transmission Date: 20061013
  Serious: Yes (Hospitalization)
  Sender: FDA-Public Use
  Company Number: 2006072212

PATIENT
  Age: 38 Year
  Sex: Female

DRUGS (9)
  1. NELFINAVIR MESILATE (NELFINAVIR MESILATE) [Suspect]
     Indication: HIV INFECTION
     Dates: start: 19970615
  2. SAQUINAVIR (SAQUINAVIR) [Suspect]
     Indication: HIV INFECTION
     Dates: start: 19970615
  3. RITONAVIR (RITONAVIR) [Suspect]
     Indication: HIV INFECTION
     Dosage: 100 MG (2X PER DAY)
     Dates: start: 19970615
  4. INDINAVIR (INDINAVIR) [Suspect]
     Indication: HIV INFECTION
     Dates: start: 19970615
  5. AMPRENAVIR (AMPRENAVIR) [Suspect]
     Indication: HIV INFECTION
     Dates: start: 19970615
  6. ABACAVIR [Suspect]
     Indication: HIV INFECTION
     Dosage: 300 MG (2 X PER DAY)
  7. LOPINAVIR (LOPINAVIR) [Suspect]
     Indication: HIV INFECTION
     Dosage: 400 MG 2X PER DAY
  8. STAVUDINE [Suspect]
     Indication: HIV INFECTION
     Dosage: 30 MG 2 X DAY
  9. CABERGOLINE [Concomitant]

REACTIONS (16)
  - ASCITES [None]
  - COAGULATION FACTOR VII LEVEL INCREASED [None]
  - COAGULATION FACTOR VIII LEVEL INCREASED [None]
  - HAEMATEMESIS [None]
  - HEPATOSPLENOMEGALY [None]
  - HOMOCYSTINAEMIA [None]
  - HYPOCHROMIC ANAEMIA [None]
  - HYPOTENSION [None]
  - INFLAMMATION [None]
  - LIPODYSTROPHY ACQUIRED [None]
  - MELAENA [None]
  - OESOPHAGEAL VARICES HAEMORRHAGE [None]
  - PLATELET COUNT DECREASED [None]
  - PORTAL VEIN THROMBOSIS [None]
  - PROTEIN S DEFICIENCY [None]
  - WHITE BLOOD CELL COUNT DECREASED [None]
